FAERS Safety Report 9496215 (Version 2)
Quarter: 2013Q3

REPORT INFORMATION
  Report Type: Spontaneous
  Country: GB (occurrence: None)
  Receive Date: 20130829
  Receipt Date: 20130909
  Transmission Date: 20140515
  Serious: Yes (Life-Threatening, Other)
  Sender: FDA-Public Use
  Company Number: AUR-APL-2013-06922

PATIENT
  Age: 79 Year
  Sex: Male
  Weight: 86 kg

DRUGS (2)
  1. SIMVASTATIN [Suspect]
     Indication: ESSENTIAL HYPERTENSION
     Route: 048
     Dates: start: 20130311
  2. ASPIRIN(ACETYLSALICYLIC ACID) [Concomitant]

REACTIONS (2)
  - Swollen tongue [None]
  - Obstructive airways disorder [None]
